APPROVED DRUG PRODUCT: MENTAX-TC
Active Ingredient: BUTENAFINE HYDROCHLORIDE
Strength: 1%
Dosage Form/Route: CREAM;TOPICAL
Application: N021408 | Product #001
Applicant: PHARMOBEDIENT CONSULTING LLC
Approved: Oct 17, 2002 | RLD: No | RS: No | Type: DISCN